FAERS Safety Report 25212298 (Version 1)
Quarter: 2025Q2

REPORT INFORMATION
  Report Type: Other
  Country: JP (occurrence: JP)
  Receive Date: 20250418
  Receipt Date: 20250418
  Transmission Date: 20250717
  Serious: Yes (Hospitalization, Other)
  Sender: ESJAY PHARMA
  Company Number: JP-ESJAY PHARMA-000520

PATIENT
  Age: 80 Year
  Sex: Female

DRUGS (2)
  1. DONEPEZIL [Suspect]
     Active Substance: DONEPEZIL
     Indication: Insomnia
  2. DONEPEZIL [Suspect]
     Active Substance: DONEPEZIL
     Indication: Cognitive disorder

REACTIONS (3)
  - Drug-induced liver injury [Recovering/Resolving]
  - Loss of consciousness [Recovering/Resolving]
  - Urea cycle disorder [Unknown]
